FAERS Safety Report 10160356 (Version 1)
Quarter: 2014Q2

REPORT INFORMATION
  Report Type: Spontaneous
  Country: GB (occurrence: GB)
  Receive Date: 20140508
  Receipt Date: 20140508
  Transmission Date: 20141212
  Serious: Yes (Hospitalization, Other)
  Sender: FDA-Public Use
  Company Number: GB-GLAXOSMITHKLINE-B0984721A

PATIENT
  Age: 90 Year
  Sex: Female

DRUGS (16)
  1. RELVAR ELLIPTA [Suspect]
     Indication: CHRONIC OBSTRUCTIVE PULMONARY DISEASE
     Dosage: 1PUFF PER DAY
     Route: 055
     Dates: start: 20140330, end: 20140401
  2. ADCAL-D3 [Concomitant]
     Dosage: 1TAB TWICE PER DAY
  3. FUROSEMIDE [Concomitant]
     Dosage: 40MG PER DAY
  4. OMEPRAZOLE [Concomitant]
     Dosage: 20MG PER DAY
  5. PAROXETINE [Concomitant]
     Dosage: 20MG PER DAY
  6. ZOLPIDEM [Concomitant]
     Dosage: 2TAB AT NIGHT
  7. FERROUS SULPHATE [Concomitant]
  8. SALBUTAMOL EASYHALER [Concomitant]
     Dosage: 1PUFF FOUR TIMES PER DAY
  9. CLARITHROMYCIN [Concomitant]
  10. PREDNISOLONE [Concomitant]
     Dates: end: 20140402
  11. ENOXAPARIN [Concomitant]
  12. CO-PROXAMOL [Concomitant]
  13. CO-CODAMOL [Concomitant]
  14. OROMORPH [Concomitant]
  15. SALINE [Concomitant]
  16. PIRITON [Concomitant]

REACTIONS (1)
  - Urticaria [Recovered/Resolved]
